FAERS Safety Report 10701174 (Version 1)
Quarter: 2015Q1

REPORT INFORMATION
  Report Type: Report from Study
  Country: BR (occurrence: BR)
  Receive Date: 20150109
  Receipt Date: 20150109
  Transmission Date: 20150721
  Serious: Yes (Death, Hospitalization, Other)
  Sender: FDA-Public Use
  Company Number: BR-BAYER-2015-000918

PATIENT
  Age: 74 Year
  Sex: Female
  Weight: 50 kg

DRUGS (5)
  1. NEXAVAR [Suspect]
     Active Substance: SORAFENIB
     Indication: HEPATIC CANCER
     Dosage: 800 MG, QD
     Dates: start: 201409, end: 2014
  2. NEXAVAR [Suspect]
     Active Substance: SORAFENIB
     Indication: HEPATIC CANCER
     Dosage: 200 MG, QD
     Dates: start: 201409, end: 2014
  3. CODEINE [Concomitant]
     Active Substance: CODEINE
     Indication: PAIN
     Dosage: 1 DF, TID
     Route: 048
  4. NEXAVAR [Suspect]
     Active Substance: SORAFENIB
     Indication: HEPATIC CANCER
     Dosage: 400 MG, QD
     Route: 048
     Dates: start: 201408, end: 201409
  5. NEXAVAR [Suspect]
     Active Substance: SORAFENIB
     Indication: HEPATIC CANCER
     Dosage: 800 MG, QD
     Dates: start: 2014, end: 201412

REACTIONS (13)
  - Feeling abnormal [Not Recovered/Not Resolved]
  - Metastases to kidney [Fatal]
  - Multi-organ failure [Not Recovered/Not Resolved]
  - Metastases to stomach [Fatal]
  - Feeding disorder [Not Recovered/Not Resolved]
  - Abdominal discomfort [Not Recovered/Not Resolved]
  - Metastases to gastrointestinal tract [Fatal]
  - Abdominal pain [Not Recovered/Not Resolved]
  - Hepatic cancer [Fatal]
  - Urinary retention [Not Recovered/Not Resolved]
  - Swelling [Not Recovered/Not Resolved]
  - Diarrhoea [Recovered/Resolved]
  - Decreased appetite [Not Recovered/Not Resolved]

NARRATIVE: CASE EVENT DATE: 201408
